FAERS Safety Report 15537450 (Version 1)
Quarter: 2018Q4

REPORT INFORMATION
  Report Type: Other
  Country: CA (occurrence: US)
  Receive Date: 20181022
  Receipt Date: 20181022
  Transmission Date: 20190205
  Serious: No
  Sender: FDA-Public Use
  Company Number: US-APOLLO HEALTH AND BEAUTY CARE INC.-2056593

PATIENT
  Sex: Female

DRUGS (1)
  1. CLEAR SKIN DAILY MOISTURIZER [Suspect]
     Active Substance: SALICYLIC ACID

REACTIONS (1)
  - Rash [None]
